FAERS Safety Report 20217749 (Version 1)
Quarter: 2021Q4

REPORT INFORMATION
  Report Type: Spontaneous
  Country: US (occurrence: US)
  Receive Date: 20211222
  Receipt Date: 20211222
  Transmission Date: 20220303
  Serious: No
  Sender: FDA-Public Use
  Company Number: US-BioHaven Pharmaceuticals-2021BHV000170

PATIENT
  Sex: Male

DRUGS (5)
  1. NURTEC ODT [Suspect]
     Active Substance: RIMEGEPANT SULFATE
     Indication: Migraine
     Route: 048
     Dates: start: 20210826
  2. NURTEC ODT [Suspect]
     Active Substance: RIMEGEPANT SULFATE
     Indication: Migraine
  3. WARFARIN [Concomitant]
     Active Substance: WARFARIN
  4. ROBAXIN [Concomitant]
     Active Substance: METHOCARBAMOL
  5. PERCODAN [Concomitant]
     Active Substance: ASPIRIN\OXYCODONE HYDROCHLORIDE

REACTIONS (4)
  - Vision blurred [Unknown]
  - Vision blurred [Unknown]
  - Vision blurred [Unknown]
  - Drug ineffective [Unknown]

NARRATIVE: CASE EVENT DATE: 20210101
